FAERS Safety Report 5630187-4 (Version None)
Quarter: 2008Q1

REPORT INFORMATION
  Report Type: 
  Country: None (occurrence: None)
  Receive Date: 20080219
  Receipt Date: 20080208
  Transmission Date: 20080703
  Serious: Yes (Hospitalization)
  Sender: FDA-Public Use
  Company Number: JP-JNJFOC-20080201988

PATIENT
  Sex: Male

DRUGS (5)
  1. CRAVIT [Suspect]
     Indication: UPPER RESPIRATORY TRACT INFLAMMATION
     Route: 048
  2. RESPLEN [Concomitant]
     Indication: UPPER RESPIRATORY TRACT INFLAMMATION
     Route: 065
  3. MUCOSOLVAN [Concomitant]
     Indication: UPPER RESPIRATORY TRACT INFLAMMATION
     Route: 065
  4. ZYRTEC [Concomitant]
     Indication: UPPER RESPIRATORY TRACT INFLAMMATION
     Route: 065
  5. PL [Concomitant]
     Route: 065

REACTIONS (1)
  - INTERSTITIAL LUNG DISEASE [None]
